FAERS Safety Report 8808955 (Version 3)
Quarter: 2012Q4

REPORT INFORMATION
  Report Type: Report from Study
  Country: ES (occurrence: ES)
  Receive Date: 20120926
  Receipt Date: 20121011
  Transmission Date: 20130627
  Serious: Yes (Hospitalization)
  Sender: FDA-Public Use
  Company Number: ES-ASTELLAS-2012US008066

PATIENT
  Age: 75 Year
  Sex: Male

DRUGS (13)
  1. ERLOTINIB TABLET [Suspect]
     Indication: PANCREATIC CARCINOMA
     Dosage: 100 mg, UID/QD
     Route: 048
     Dates: start: 20120802
  2. GEMCITABINE [Suspect]
     Indication: PANCREATIC CARCINOMA
     Dosage: 2050 mg, Weekly
     Route: 042
     Dates: start: 20120802
  3. GEMCITABINE [Suspect]
     Dosage: 2050 mg, Unknown/D
     Route: 065
     Dates: start: 20120808
  4. GEMCITABINE [Suspect]
     Dosage: 1005 mg, Unknown/D
     Route: 065
     Dates: start: 20120821
  5. OMEPRAZOL                          /00661201/ [Concomitant]
     Indication: PROPHYLAXIS
     Dosage: 80 mg, Unknown/D
     Route: 065
     Dates: start: 200409
  6. KARVEZIDE [Concomitant]
     Indication: HYPERTENSION
     Dosage: 300 mg, Unknown/D
     Route: 048
     Dates: start: 201201
  7. FENTANYL CITRATE [Concomitant]
     Indication: PAIN
     Dosage: 25 ug, Q12 hours, prn
     Route: 065
  8. FENTANYL CITRATE [Concomitant]
     Dosage: 200 ug, prn
     Route: 048
  9. ACETYLSALICYLIC ACID [Concomitant]
     Indication: PROPHYLAXIS
     Dosage: 100 mg, Unknown/D
     Route: 048
     Dates: start: 200409
  10. RAMIPRIL [Concomitant]
     Indication: HYPERTENSION
     Dosage: 5 mg, Unknown/D
     Route: 048
     Dates: start: 200409
  11. TRANXILIUM [Concomitant]
     Indication: ANXIETY
     Dosage: 10 mg, Unknown/D
     Route: 048
     Dates: start: 201206
  12. PREGABALIN [Concomitant]
     Indication: PAIN
     Dosage: 75 mg, Unknown/D
     Route: 048
  13. DOSTINEX [Concomitant]
     Indication: PRODUCT USED FOR UNKNOWN INDICATION
     Dosage: 0.5 mg, Unknown/D
     Route: 048

REACTIONS (1)
  - Arthritis [Recovered/Resolved]
